FAERS Safety Report 6464266-9 (Version None)
Quarter: 2009Q4

REPORT INFORMATION
  Report Type: 
  Country: None (occurrence: None)
  Receive Date: 20091130
  Receipt Date: 20091130
  Transmission Date: 20100525
  Serious: Yes (Death, Hospitalization, Other)
  Sender: FDA-Public Use
  Company Number: None

PATIENT
  Age: 47 Year
  Sex: Female
  Weight: 51.7 kg

DRUGS (16)
  1. TEMOZOLOMIDE [Suspect]
     Indication: MALIGNANT MELANOMA
     Dosage: 120MG PO DAILY
     Route: 048
     Dates: start: 20090812
  2. SUNITINIB - PFIZER [Suspect]
     Dosage: 12.5MG PO DAILY
     Route: 048
     Dates: start: 20090919
  3. DILAUDID [Concomitant]
  4. REGLAN [Concomitant]
  5. DEXAMETHASONE TAB [Concomitant]
  6. LYRICA [Concomitant]
  7. COLACE [Concomitant]
  8. SENNA [Concomitant]
  9. MIRALAX [Concomitant]
  10. PROTONIX [Concomitant]
  11. LEVAQUIN [Concomitant]
  12. MORPHINE [Concomitant]
  13. ATIVAN [Concomitant]
  14. POTASSIUM CHLORIDE [Concomitant]
  15. NORVASC [Concomitant]
  16. TYLENOL (CAPLET) [Concomitant]

REACTIONS (6)
  - DIPLEGIA [None]
  - MALIGNANT NEOPLASM PROGRESSION [None]
  - METASTATIC MALIGNANT MELANOMA [None]
  - NO THERAPEUTIC RESPONSE [None]
  - REFUSAL OF TREATMENT BY PATIENT [None]
  - SPINAL CORD COMPRESSION [None]
